FAERS Safety Report 8042291-4 (Version None)
Quarter: 2012Q1

REPORT INFORMATION
  Report Type: 
  Country: None (occurrence: None)
  Receive Date: 20120112
  Receipt Date: 20120109
  Transmission Date: 20120608
  Serious: Yes (Hospitalization)
  Sender: FDA-Public Use
  Company Number: US-AMGEN-USASP2012001357

PATIENT
  Age: 44 Year
  Sex: Female

DRUGS (4)
  1. HUMIRA [Concomitant]
     Dosage: UNK
  2. REMICADE [Concomitant]
     Dosage: UNK
  3. ENBREL [Suspect]
     Indication: RHEUMATOID ARTHRITIS
     Dosage: 25 MG, 2 TIMES/WK
     Dates: start: 20030401, end: 20101001
  4. METHOTREXATE [Concomitant]
     Dosage: UNK

REACTIONS (8)
  - DRUG EFFECT DECREASED [None]
  - TENDON INJURY [None]
  - INCISION SITE INFECTION [None]
  - LUNG INFECTION [None]
  - PAIN [None]
  - SWELLING [None]
  - SEPSIS [None]
  - PSORIASIS [None]
